FAERS Safety Report 5372104-0 (Version None)
Quarter: 2007Q2

REPORT INFORMATION
  Report Type: 
  Country: None (occurrence: None)
  Receive Date: 20070625
  Receipt Date: 20070618
  Transmission Date: 20071010
  Serious: Yes (Death, Hospitalization)
  Sender: FDA-Public Use
  Company Number: 2007SP012366

PATIENT
  Age: 56 Year
  Sex: Female
  Weight: 57 kg

DRUGS (5)
  1. INTRON A [Suspect]
     Indication: RENAL CELL CARCINOMA STAGE UNSPECIFIED
     Dosage: 3 MIU;TIW;IM
     Route: 030
     Dates: start: 20060123, end: 20070608
  2. SORAFENIB (SORAFENIB) [Suspect]
     Indication: RENAL CELL CARCINOMA STAGE UNSPECIFIED
     Dosage: 400 MG;TID;PO
     Route: 048
     Dates: start: 20070206, end: 20070609
  3. LOXONIN [Concomitant]
  4. SELBEX [Concomitant]
  5. LENDORMIN D [Concomitant]

REACTIONS (36)
  - ABDOMINAL DISTENSION [None]
  - ABDOMINAL PAIN [None]
  - ABDOMINAL PAIN UPPER [None]
  - ANAEMIA [None]
  - BLOOD PRESSURE SYSTOLIC INCREASED [None]
  - BODY TEMPERATURE DECREASED [None]
  - CARDIO-RESPIRATORY ARREST [None]
  - CONSTIPATION [None]
  - DIARRHOEA [None]
  - DISSEMINATED INTRAVASCULAR COAGULATION [None]
  - DRUG TOXICITY [None]
  - DYSPEPSIA [None]
  - FATIGUE [None]
  - GASTRIC ULCER [None]
  - GASTROINTESTINAL HAEMORRHAGE [None]
  - HAEMATEMESIS [None]
  - HAEMATOCHEZIA [None]
  - HAEMATURIA [None]
  - HAEMOGLOBIN DECREASED [None]
  - HAEMORRHAGE SUBCUTANEOUS [None]
  - HAEMORRHAGIC DIATHESIS [None]
  - HEPATIC FUNCTION ABNORMAL [None]
  - HYPOTENSION [None]
  - INJECTION SITE HAEMORRHAGE [None]
  - INTRA-ABDOMINAL HAEMORRHAGE [None]
  - MALAISE [None]
  - METASTASES TO LUNG [None]
  - METASTASES TO RETROPERITONEUM [None]
  - MYDRIASIS [None]
  - PLATELET COUNT DECREASED [None]
  - PULSE PRESSURE DECREASED [None]
  - PYREXIA [None]
  - RENAL IMPAIRMENT [None]
  - TUMOUR EMBOLISM [None]
  - UNRESPONSIVE TO STIMULI [None]
  - VISION BLURRED [None]
